FAERS Safety Report 25657564 (Version 1)
Quarter: 2025Q3

REPORT INFORMATION
  Report Type: Spontaneous
  Country: US (occurrence: US)
  Receive Date: 20250808
  Receipt Date: 20250808
  Transmission Date: 20251021
  Serious: Yes (Hospitalization, Other)
  Sender: UROGEN PHARMA
  Company Number: US-UROGEN PHARMA LTD.-2025-UGN-000113

PATIENT

DRUGS (11)
  1. JELMYTO [Suspect]
     Active Substance: MITOMYCIN
     Indication: Transitional cell cancer of the renal pelvis and ureter
     Dosage: 40 MG, ONCE A WEEK INSTILLATION IN LEFT KIDNEY
     Dates: start: 20241226, end: 20241226
  2. JELMYTO [Suspect]
     Active Substance: MITOMYCIN
     Dosage: 40 MG, ONCE A WEEK INSTILLATION IN LEFT KIDNEY
     Dates: start: 20250102, end: 20250102
  3. JELMYTO [Suspect]
     Active Substance: MITOMYCIN
     Dosage: 40 MG, ONCE A WEEK INSTILLATION IN LEFT KIDNEY
     Dates: start: 20250109, end: 20250109
  4. JELMYTO [Suspect]
     Active Substance: MITOMYCIN
     Dosage: 40 MG, ONCE A WEEK INSTILLATION IN LEFT KIDNEY
     Dates: start: 20250116, end: 20250116
  5. JELMYTO [Suspect]
     Active Substance: MITOMYCIN
     Dosage: 40 MG, ONCE A WEEK INSTILLATION IN LEFT KIDNEY
     Dates: start: 20250123, end: 20250123
  6. JELMYTO [Suspect]
     Active Substance: MITOMYCIN
     Dosage: 40 MG, ONCE A WEEK INSTILLATION IN LEFT KIDNEY
     Dates: start: 20250130, end: 20250130
  7. JELMYTO [Suspect]
     Active Substance: MITOMYCIN
     Dosage: 40 MG, ONCE A WEEK INSTILLATION IN RIGHT KIDNEY
     Dates: start: 20250220, end: 20250220
  8. JELMYTO [Suspect]
     Active Substance: MITOMYCIN
     Dosage: 40 MG, ONCE A WEEK INSTILLATION IN RIGHT KIDNEY
     Dates: start: 20250227, end: 20250227
  9. JELMYTO [Suspect]
     Active Substance: MITOMYCIN
     Dosage: 40 MG, ONCE A WEEK INSTILLATION IN RIGHT KIDNEY
     Dates: start: 20250306, end: 20250306
  10. JELMYTO [Suspect]
     Active Substance: MITOMYCIN
     Dosage: 40 MG, ONCE A WEEK INSTILLATION IN RIGHT KIDNEY
     Dates: start: 20250313, end: 20250313
  11. JELMYTO [Suspect]
     Active Substance: MITOMYCIN
     Dosage: 40 MG, ONCE A WEEK INSTILLATION IN RIGHT KIDNEY
     Dates: start: 20250320, end: 20250320

REACTIONS (3)
  - Urosepsis [Not Recovered/Not Resolved]
  - Urosepsis [Not Recovered/Not Resolved]
  - Urosepsis [Not Recovered/Not Resolved]

NARRATIVE: CASE EVENT DATE: 20250301
